FAERS Safety Report 20815860 (Version 1)
Quarter: 2022Q2

REPORT INFORMATION
  Report Type: Spontaneous
  Country: US (occurrence: US)
  Receive Date: 20220511
  Receipt Date: 20220511
  Transmission Date: 20220721
  Serious: No
  Sender: FDA-Public Use
  Company Number: US-PFIZER INC-202200552977

PATIENT
  Sex: Female

DRUGS (2)
  1. BOSUTINIB [Suspect]
     Active Substance: BOSUTINIB
     Dosage: 400 MG
  2. BOSUTINIB [Suspect]
     Active Substance: BOSUTINIB
     Dosage: 200 MG, DAILY

REACTIONS (2)
  - Fatigue [Unknown]
  - Diarrhoea [Unknown]
